FAERS Safety Report 26149212 (Version 2)
Quarter: 2025Q4

REPORT INFORMATION
  Report Type: Report from Study
  Country: MX (occurrence: MX)
  Receive Date: 20251212
  Receipt Date: 20251218
  Transmission Date: 20260118
  Serious: Yes (Other)
  Sender: ROCHE
  Company Number: MX-ROCHE-10000455190

PATIENT
  Age: 33 Year
  Sex: Male
  Weight: 80.5 kg

DRUGS (1)
  1. ROZLYTREK [Suspect]
     Active Substance: ENTRECTINIB
     Indication: Neoplasm
     Dosage: 3 CAPSULES (200 MG EACH)
     Route: 048
     Dates: start: 202509, end: 202510

REACTIONS (3)
  - Therapeutic product effect decreased [Unknown]
  - Metastasis [Not Recovered/Not Resolved]
  - Disease progression [Unknown]

NARRATIVE: CASE EVENT DATE: 20251101
